FAERS Safety Report 4681834-5 (Version None)
Quarter: 2005Q2

REPORT INFORMATION
  Report Type: 
  Country: None (occurrence: None)
  Receive Date: 20050602
  Receipt Date: 20050519
  Transmission Date: 20051028
  Serious: Yes (Hospitalization)
  Sender: FDA-Public Use
  Company Number: DEU-2005-0001445

PATIENT
  Age: 47 Year
  Sex: Male
  Weight: 85 kg

DRUGS (7)
  1. OXYCODON KAPSELN 5MG (OXYCODONE HYDROCHLORIDE) IR CAPSULE [Suspect]
     Indication: BACK PAIN
     Dosage: ORAL
     Route: 048
  2. OXYCODONE HCL [Suspect]
     Indication: BACK PAIN
     Dosage: SEE IMAGE, ORAL
     Route: 048
     Dates: start: 20050425, end: 20050502
  3. OXYCODONE HCL [Suspect]
     Indication: BACK PAIN
     Dosage: SEE IMAGE, ORAL
     Route: 048
     Dates: start: 20050503, end: 20050513
  4. OXYCODONE HCL [Suspect]
     Indication: BACK PAIN
     Dosage: SEE IMAGE, ORAL
     Route: 048
     Dates: start: 20050514, end: 20050515
  5. OXYCODONE HCL [Suspect]
     Indication: BACK PAIN
     Dosage: SEE IMAGE, ORAL
     Route: 048
     Dates: start: 20050516, end: 20050517
  6. BUPRENORPHINE [Concomitant]
  7. ACETYLSALICYLIC ACID [Concomitant]

REACTIONS (1)
  - ABDOMINAL PAIN UPPER [None]
